FAERS Safety Report 17264797 (Version 1)
Quarter: 2020Q1

REPORT INFORMATION
  Report Type: Spontaneous
  Country: CA (occurrence: CA)
  Receive Date: 20200113
  Receipt Date: 20200113
  Transmission Date: 20200409
  Serious: Yes (Death, Life-Threatening, Other)
  Sender: FDA-Public Use
  Company Number: CA-TEVA-2020-CA-1166970

PATIENT
  Age: 10 Month
  Sex: Female

DRUGS (1)
  1. MORPHINE [Suspect]
     Active Substance: MORPHINE
     Route: 065

REACTIONS (7)
  - Cyanosis [Fatal]
  - Pulmonary congestion [Fatal]
  - Overdose [Fatal]
  - Dyspnoea [Fatal]
  - Pneumonia [Fatal]
  - Apnoea [Fatal]
  - Product use issue [Fatal]
